FAERS Safety Report 16654069 (Version 1)
Quarter: 2019Q3

REPORT INFORMATION
  Report Type: Spontaneous
  Country: US (occurrence: US)
  Receive Date: 20190731
  Receipt Date: 20190731
  Transmission Date: 20191004
  Serious: No
  Sender: FDA-Public Use
  Company Number: US-SA-2019SA158161

PATIENT
  Age: 40 Year
  Sex: Male

DRUGS (3)
  1. DULCOLAX NOS [Suspect]
     Active Substance: BISACODYL OR DOCUSATE SODIUM
     Dosage: 5 MG
     Route: 065
     Dates: start: 20190623
  2. DULCOLAX NOS [Suspect]
     Active Substance: BISACODYL OR DOCUSATE SODIUM
     Indication: CONSTIPATION
     Dosage: UNK
     Route: 065
  3. DULCOLAX NOS [Suspect]
     Active Substance: BISACODYL OR DOCUSATE SODIUM
     Dosage: 1 DF, QD; TABLET
     Dates: start: 20190720

REACTIONS (5)
  - Muscle spasms [Unknown]
  - Frequent bowel movements [Unknown]
  - Gastrointestinal pain [Unknown]
  - Speech disorder [Unknown]
  - Therapeutic response decreased [Unknown]

NARRATIVE: CASE EVENT DATE: 201907
